FAERS Safety Report 7730379-4 (Version None)
Quarter: 2011Q3

REPORT INFORMATION
  Report Type: 
  Country: None (occurrence: None)
  Receive Date: 20110906
  Receipt Date: 20110804
  Transmission Date: 20111222
  Serious: No
  Sender: FDA-Public Use
  Company Number: US-GLAXOSMITHKLINE-A0940536A

PATIENT
  Age: 21 Year
  Sex: Male
  Weight: 63.6 kg

DRUGS (4)
  1. NEURONTIN [Suspect]
     Indication: AFFECTIVE DISORDER
     Route: 065
     Dates: start: 20110701
  2. WELLBUTRIN [Concomitant]
     Dosage: 100MG UNKNOWN
  3. BENADRYL [Suspect]
     Indication: RASH
     Route: 065
  4. LAMICTAL [Suspect]
     Indication: AFFECTIVE DISORDER
     Route: 065
     Dates: start: 20101101, end: 20110601

REACTIONS (7)
  - RASH [None]
  - DIARRHOEA [None]
  - FEELING ABNORMAL [None]
  - BLISTER [None]
  - PAIN [None]
  - DEPRESSION [None]
  - PRURITUS [None]
